FAERS Safety Report 6811329-1 (Version None)
Quarter: 2010Q2

REPORT INFORMATION
  Report Type: 
  Country: None (occurrence: None)
  Receive Date: 20100630
  Receipt Date: 20100624
  Transmission Date: 20101027
  Serious: Yes (Other)
  Sender: FDA-Public Use
  Company Number: GB-MERCK-1005GBR00064

PATIENT
  Age: 21 Month
  Sex: Female

DRUGS (3)
  1. SINGULAIR [Suspect]
     Indication: ASTHMA
     Route: 048
     Dates: start: 20100105, end: 20100521
  2. ALBUTEROL [Concomitant]
     Indication: ASTHMA
     Route: 055
  3. DEXAMETHASONE [Concomitant]
     Indication: ASTHMA
     Route: 055

REACTIONS (3)
  - INSOMNIA [None]
  - NIGHTMARE [None]
  - PETIT MAL EPILEPSY [None]
